FAERS Safety Report 7875251-4 (Version None)
Quarter: 2011Q4

REPORT INFORMATION
  Report Type: 
  Country: None (occurrence: None)
  Receive Date: 20111031
  Receipt Date: 20111021
  Transmission Date: 20120403
  Serious: Yes (Other)
  Sender: FDA-Public Use
  Company Number: BF-ABBOTT-11P-027-0868548-00

PATIENT
  Age: 27 Year
  Sex: Female

DRUGS (3)
  1. PREZISTA [Concomitant]
     Indication: HIV INFECTION
     Dosage: TAKEN AT CONCEPTION
     Route: 048
     Dates: start: 20100827
  2. RITONAVIR [Suspect]
     Indication: HIV INFECTION
     Dosage: TAKEN AT CONCEPTION
     Route: 048
     Dates: start: 20100827
  3. TRUVADA [Concomitant]
     Indication: HIV INFECTION
     Dosage: TAKEN AT CONCEPTION (TABLETS/CAPSULES)
     Route: 048
     Dates: start: 20100827

REACTIONS (1)
  - ABORTION INDUCED [None]
